FAERS Safety Report 4663489-9 (Version None)
Quarter: 2005Q2

REPORT INFORMATION
  Report Type: 
  Country: None (occurrence: None)
  Receive Date: 20050517
  Receipt Date: 20050323
  Transmission Date: 20051028
  Serious: Yes (Congenital Anomaly)
  Sender: FDA-Public Use
  Company Number: US-GLAXOSMITHKLINE-A0543374B

PATIENT
  Sex: Male
  Weight: 1.7 kg

DRUGS (7)
  1. EPIVIR [Suspect]
     Indication: HIV INFECTION
     Dosage: 150MG TWICE PER DAY
  2. SPORANOX [Suspect]
  3. KALETRA [Concomitant]
     Indication: HIV INFECTION
     Dosage: 3CAP TWICE PER DAY
  4. ZERIT [Concomitant]
     Indication: HIV INFECTION
     Dosage: 40MG TWICE PER DAY
  5. ZERIT [Concomitant]
     Dosage: 30MG TWICE PER DAY
     Dates: start: 20040817
  6. ANTIBIOTICS [Concomitant]
  7. ANESTHESIA [Concomitant]

REACTIONS (9)
  - BRAIN SCAN ABNORMAL [None]
  - BREECH PRESENTATION [None]
  - CAESAREAN SECTION [None]
  - CONGENITAL GENITAL MALFORMATION [None]
  - DRUG EXPOSURE DURING PREGNANCY [None]
  - GROWTH RETARDATION [None]
  - MECONIUM STAIN [None]
  - MICROCEPHALY [None]
  - UMBILICAL CORD ABNORMALITY [None]
